FAERS Safety Report 5807556-2 (Version None)
Quarter: 2008Q3

REPORT INFORMATION
  Report Type: 
  Country: None (occurrence: None)
  Receive Date: 20080711
  Receipt Date: 20080709
  Transmission Date: 20090109
  Serious: Yes (Hospitalization, Other)
  Sender: FDA-Public Use
  Company Number: PW/020702/351

PATIENT
  Sex: Female

DRUGS (3)
  1. SUBUTEX [Suspect]
     Route: 002
  2. LEVOMEPROMAZINE [Suspect]
     Indication: INSOMNIA
     Dosage: DOSING INFORMATION UNKNOWN
     Route: 065
  3. LEVOMEPROMAZINE [Suspect]
     Indication: DEPRESSION
     Dosage: DOSING INFORMATION UNKNOWN
     Route: 065

REACTIONS (2)
  - DRUG EXPOSURE DURING PREGNANCY [None]
  - INTRA-UTERINE DEATH [None]
